FAERS Safety Report 17673722 (Version 1)
Quarter: 2020Q2

REPORT INFORMATION
  Report Type: Spontaneous
  Country: US (occurrence: US)
  Receive Date: 20200415
  Receipt Date: 20200415
  Transmission Date: 20200714
  Serious: No
  Sender: FDA-Public Use
  Company Number: US-SA-2020SA093900

PATIENT
  Age: 32 Year
  Sex: Male

DRUGS (1)
  1. DUPIXENT [Suspect]
     Active Substance: DUPILUMAB
     Indication: DERMATITIS ATOPIC
     Dosage: 300 MG, QOW
     Route: 058
     Dates: start: 20190716

REACTIONS (6)
  - Influenza like illness [Unknown]
  - Injection site irritation [Recovered/Resolved]
  - Dermatitis atopic [Unknown]
  - Rash erythematous [Unknown]
  - Injection site pruritus [Recovered/Resolved]
  - Rash [Unknown]
